FAERS Safety Report 8798217 (Version 2)
Quarter: 2015Q1

REPORT INFORMATION
  Report Type: Report from Study
  Country: US (occurrence: US)
  Receive Date: 20120920
  Receipt Date: 20150227
  Transmission Date: 20150721
  Serious: Yes (Death)
  Sender: FDA-Public Use
  Company Number: US-ROCHE-1097875

PATIENT
  Sex: Female
  Weight: 60.38 kg

DRUGS (2)
  1. IXEMPRA [Concomitant]
     Active Substance: IXABEPILONE
  2. AVASTIN [Suspect]
     Active Substance: BEVACIZUMAB
     Indication: BREAST CANCER
     Route: 042

REACTIONS (3)
  - Death [Fatal]
  - Malaise [Unknown]
  - Blood count abnormal [Unknown]
